FAERS Safety Report 21891451 (Version 7)
Quarter: 2023Q1

REPORT INFORMATION
  Report Type: Spontaneous
  Country: JP (occurrence: JP)
  Receive Date: 20230120
  Receipt Date: 20230307
  Transmission Date: 20230417
  Serious: Yes (Other)
  Sender: FDA-Public Use
  Company Number: JP-PFM-2023-00309

PATIENT

DRUGS (17)
  1. PROPRANOLOL [Suspect]
     Active Substance: PROPRANOLOL HYDROCHLORIDE
     Indication: Infantile haemangioma
     Dosage: 0.3 MG/KG, BID (2/DAY)
     Route: 048
     Dates: start: 20220621, end: 20220622
  2. PROPRANOLOL [Suspect]
     Active Substance: PROPRANOLOL HYDROCHLORIDE
     Dosage: 0.5 MG/KG, BID (2/DAY)
     Route: 048
     Dates: start: 20220623, end: 20220626
  3. PROPRANOLOL [Suspect]
     Active Substance: PROPRANOLOL HYDROCHLORIDE
     Dosage: 0.4 MG/KG, BID (2/DAY)
     Route: 048
     Dates: start: 20220627, end: 20220706
  4. PROPRANOLOL [Suspect]
     Active Substance: PROPRANOLOL HYDROCHLORIDE
     Dosage: 0.6 MG/KG, BID (2/DAY)
     Route: 048
     Dates: start: 20220707, end: 20220713
  5. PROPRANOLOL [Suspect]
     Active Substance: PROPRANOLOL HYDROCHLORIDE
     Dosage: UNK
     Route: 048
  6. PROPRANOLOL [Suspect]
     Active Substance: PROPRANOLOL HYDROCHLORIDE
     Dosage: 0.24 ML/DAY
     Route: 048
  7. PROPRANOLOL [Suspect]
     Active Substance: PROPRANOLOL HYDROCHLORIDE
     Dosage: 0.5 ML/DAY
     Route: 048
  8. SODIUM FERROUS CITRATE [Concomitant]
     Active Substance: SODIUM FERROUS CITRATE
     Indication: Anaemia neonatal
     Dosage: 7 MG
     Route: 048
     Dates: start: 20220531, end: 20220608
  9. SODIUM FERROUS CITRATE [Concomitant]
     Active Substance: SODIUM FERROUS CITRATE
     Dosage: 9 MG
     Route: 048
     Dates: start: 20220609, end: 20220615
  10. SODIUM FERROUS CITRATE [Concomitant]
     Active Substance: SODIUM FERROUS CITRATE
     Dosage: 10 MG
     Route: 048
     Dates: start: 20220616, end: 20220622
  11. SODIUM FERROUS CITRATE [Concomitant]
     Active Substance: SODIUM FERROUS CITRATE
     Dosage: 12 MG
     Route: 048
     Dates: start: 20220623, end: 20220706
  12. SODIUM FERROUS CITRATE [Concomitant]
     Active Substance: SODIUM FERROUS CITRATE
     Dosage: 13 MG
     Route: 048
     Dates: start: 20220707, end: 20220713
  13. ZINC [Concomitant]
     Active Substance: ZINC
     Indication: Zinc deficiency
     Dosage: 5 MG
     Route: 048
     Dates: start: 20220614, end: 20220622
  14. ZINC [Concomitant]
     Active Substance: ZINC
     Dosage: 6 MG
     Route: 048
     Dates: start: 20220623, end: 20220713
  15. MENATETRENONE [Concomitant]
     Active Substance: MENATETRENONE
     Indication: Vitamin E deficiency
     Dosage: 1 ML
     Route: 048
     Dates: start: 20220620, end: 20220620
  16. MENATETRENONE [Concomitant]
     Active Substance: MENATETRENONE
     Dosage: 1 ML
     Route: 048
     Dates: start: 20220627, end: 20220627
  17. MENATETRENONE [Concomitant]
     Active Substance: MENATETRENONE
     Dosage: 1 ML
     Route: 048
     Dates: start: 20220704, end: 20220704

REACTIONS (5)
  - Infantile apnoea [Recovered/Resolved]
  - Blood pressure decreased [Recovered/Resolved]
  - Bradycardia [Recovered/Resolved]
  - Contraindicated product administered [Unknown]
  - Off label use [Unknown]

NARRATIVE: CASE EVENT DATE: 20220621
